FAERS Safety Report 10162167 (Version 1)
Quarter: 2014Q2

REPORT INFORMATION
  Report Type: Spontaneous
  Country: US (occurrence: None)
  Receive Date: 20140508
  Receipt Date: 20140508
  Transmission Date: 20141212
  Serious: Yes (Hospitalization)
  Sender: FDA-Public Use
  Company Number: None

PATIENT
  Age: 62 Year
  Sex: Male
  Weight: 75 kg

DRUGS (11)
  1. NULOJIX [Suspect]
     Indication: RENAL TRANSPLANT
     Dosage: BETACEPT INFUSION:?3/1/2014??3/5/2014?3/13/204?3/27/20114
     Route: 042
     Dates: end: 20140424
  2. CELLCEPT [Suspect]
     Indication: RENAL TRANSPLANT
     Route: 048
     Dates: start: 20140301
  3. BELATACEPT INFUSION [Concomitant]
  4. CINACALCET (SENSIPAR) [Concomitant]
  5. DOCUSATE SODIUM (COLACE) [Concomitant]
  6. PANTOPRAZOLE (PROTONIX) [Concomitant]
  7. SULFAMETHOXAZOLE-TRIMETHOPRIM (BACTRIM, SEPTRA) [Concomitant]
  8. VALGANCICOLVIR (VALCYTE) [Concomitant]
  9. CLOTRIMAZOLE (MYCELEX) [Concomitant]
  10. MYCOPHENOLATE (CELLCEPT) [Concomitant]
  11. PREDNISONE (DELTASONE) [Concomitant]

REACTIONS (3)
  - Gastroenteritis [None]
  - Renal failure acute [None]
  - Hypovolaemia [None]
